FAERS Safety Report 7788680-4 (Version None)
Quarter: 2011Q3

REPORT INFORMATION
  Report Type: 
  Country: None (occurrence: None)
  Receive Date: 20110928
  Receipt Date: 20110914
  Transmission Date: 20111222
  Serious: Yes (Death, Other)
  Sender: FDA-Public Use
  Company Number: FR-ACCORD-010695

PATIENT

DRUGS (4)
  1. LEUCOVORIN (LEUCOVORIN) [Concomitant]
  2. IRINOTECAN HCL [Suspect]
     Indication: PANCREATIC CARCINOMA METASTATIC
     Dosage: 180.00-MG/M2
  3. FLUOROURACIL [Suspect]
     Indication: PANCREATIC CARCINOMA METASTATIC
     Dosage: 400.00-MG/M2
  4. OXALIPLATIN [Suspect]
     Indication: PANCREATIC CARCINOMA METASTATIC
     Dosage: 85.00-MG/M2

REACTIONS (2)
  - FEBRILE NEUTROPENIA [None]
  - SEPTIC SHOCK [None]
